FAERS Safety Report 8197148-5 (Version None)
Quarter: 2012Q1

REPORT INFORMATION
  Report Type: 
  Country: None (occurrence: None)
  Receive Date: 20120307
  Receipt Date: 20120229
  Transmission Date: 20120608
  Serious: Yes (Hospitalization)
  Sender: FDA-Public Use
  Company Number: B0785117A

PATIENT
  Age: 38 Year
  Sex: Female

DRUGS (2)
  1. RANITIDINE [Suspect]
     Indication: PRODUCT USED FOR UNKNOWN INDICATION
     Dosage: 150 MG /PER DAY
  2. HYDROXYCITRIC ACID (FORMULATION UNKNOWN) (HYDROXYCITRIC ACID) [Suspect]
     Indication: PRODUCT USED FOR UNKNOWN INDICATION
     Dosage: 500 MG /FIVE TIMES PER WEEK

REACTIONS (6)
  - ABDOMINAL PAIN [None]
  - RENAL FAILURE ACUTE [None]
  - NAUSEA [None]
  - HAEMODIALYSIS [None]
  - HYPERTENSION [None]
  - VOMITING [None]
